FAERS Safety Report 23524335 (Version 1)
Quarter: 2024Q1

REPORT INFORMATION
  Report Type: Report from Study
  Country: EG (occurrence: EG)
  Receive Date: 20240214
  Receipt Date: 20240214
  Transmission Date: 20240410
  Serious: No
  Sender: FDA-Public Use
  Company Number: EG-SANDOZ-SDZ2024EG013485

PATIENT
  Sex: Male

DRUGS (5)
  1. OMNITROPE [Suspect]
     Active Substance: SOMATROPIN
     Indication: Growth hormone deficiency
     Dosage: 1.2 MG/DAY
     Route: 058
     Dates: start: 202202
  2. OMNITROPE [Suspect]
     Active Substance: SOMATROPIN
     Dosage: 1.5 MG /DAY
     Route: 065
  3. LEVOTHYROXINE [Concomitant]
     Active Substance: LEVOTHYROXINE\LEVOTHYROXINE SODIUM
     Indication: Hypothyroidism
     Dosage: UNK, QD
     Route: 048
  4. Gummies sleep [Concomitant]
     Indication: Malnutrition
     Dosage: ONCE DAILY AT MORNING
     Route: 048
     Dates: start: 202110
  5. VIDROP [Concomitant]
     Indication: Malnutrition
     Dosage: 1 DROP PER DAY
     Route: 065
     Dates: start: 202110

REACTIONS (5)
  - Expired device used [Unknown]
  - Wrong technique in product usage process [Unknown]
  - Incorrect dose administered by device [Unknown]
  - Drug ineffective [Unknown]
  - Injection site pain [Recovered/Resolved]
